FAERS Safety Report 6147449-7 (Version None)
Quarter: 2009Q2

REPORT INFORMATION
  Report Type: 
  Country: None (occurrence: None)
  Receive Date: 20090408
  Receipt Date: 20090403
  Transmission Date: 20091009
  Serious: Yes (Death)
  Sender: FDA-Public Use
  Company Number: JP-BRISTOL-MYERS SQUIBB COMPANY-14529960

PATIENT
  Age: 51 Year
  Sex: Female

DRUGS (3)
  1. TAXOL [Suspect]
     Indication: METASTATIC NEOPLASM
     Route: 041
     Dates: start: 20090212, end: 20090212
  2. PARAPLATIN [Suspect]
     Indication: METASTATIC NEOPLASM
     Route: 041
     Dates: start: 20090212, end: 20090212
  3. DECADRON [Concomitant]
     Route: 042

REACTIONS (2)
  - GASTROINTESTINAL PERFORATION [None]
  - SEPTIC SHOCK [None]
